FAERS Safety Report 11881865 (Version 1)
Quarter: 2015Q4

REPORT INFORMATION
  Report Type: Spontaneous
  Country: US (occurrence: None)
  Receive Date: 20151230
  Receipt Date: 20151230
  Transmission Date: 20160305
  Serious: Yes (Life-Threatening, Hospitalization, Disabling)
  Sender: FDA-Public Use
  Company Number: None

PATIENT
  Age: 77 Year
  Sex: Female

DRUGS (1)
  1. METRONIDAZOLE 250 MG GENERIC RX: FLAGYL [Suspect]
     Active Substance: METRONIDAZOLE
     Indication: INFECTION
     Dosage: 30 PILLS 1 EVERY 8 HRS. BY MOUTH
     Route: 048
     Dates: start: 20150912

REACTIONS (8)
  - Arthralgia [None]
  - Pain in extremity [None]
  - Urinary tract infection [None]
  - Diarrhoea [None]
  - Back pain [None]
  - Dysstasia [None]
  - Amnesia [None]
  - Abasia [None]

NARRATIVE: CASE EVENT DATE: 20150912
